FAERS Safety Report 25597945 (Version 1)
Quarter: 2025Q3

REPORT INFORMATION
  Report Type: Spontaneous
  Country: US (occurrence: US)
  Receive Date: 20250723
  Receipt Date: 20250723
  Transmission Date: 20251020
  Serious: Yes (Other)
  Sender: BAUSCH AND LOMB
  Company Number: US-BAUSCH-BH-2025-014966

PATIENT
  Sex: Female

DRUGS (1)
  1. XIFAXAN [Suspect]
     Active Substance: RIFAXIMIN
     Indication: Product used for unknown indication
     Route: 048

REACTIONS (8)
  - Choking [Unknown]
  - Ill-defined disorder [Unknown]
  - Symptom recurrence [Unknown]
  - Abdominal distension [Unknown]
  - Nausea [Unknown]
  - Product use complaint [Unknown]
  - Foreign body in throat [Unknown]
  - Wrong technique in product usage process [Unknown]
